FAERS Safety Report 17525934 (Version 1)
Quarter: 2020Q1

REPORT INFORMATION
  Report Type: Spontaneous
  Country: US (occurrence: US)
  Receive Date: 20200303
  Receipt Date: 20200303
  Transmission Date: 20200409
  Serious: No
  Sender: FDA-Public Use
  Company Number: None

PATIENT
  Age: 77 Year
  Sex: Male

DRUGS (1)
  1. ABIRATERONE 250 MG TAB [Suspect]
     Active Substance: ABIRATERONE ACETATE
     Route: 051
     Dates: start: 202002

REACTIONS (1)
  - Fatigue [None]

NARRATIVE: CASE EVENT DATE: 20200212
